FAERS Safety Report 8859570 (Version 1)
Quarter: 2012Q4

REPORT INFORMATION
  Report Type: 
  Country: US (occurrence: US)
  Receive Date: 20121025
  Receipt Date: 20121025
  Transmission Date: 20130627
  Serious: No
  Sender: FDA-Public Use
  Company Number: US-PFIZER INC-2012262138

PATIENT
  Sex: Female

DRUGS (1)
  1. PROVERA [Suspect]
     Dosage: 10 mg, 2x/day (1 tablet twice a day)

REACTIONS (1)
  - Drug ineffective [Unknown]
